FAERS Safety Report 23471734 (Version 1)
Quarter: 2024Q1

REPORT INFORMATION
  Report Type: Spontaneous
  Country: GB (occurrence: GB)
  Receive Date: 20240202
  Receipt Date: 20240202
  Transmission Date: 20240409
  Serious: Yes (Other)
  Sender: FDA-Public Use
  Company Number: None

PATIENT
  Age: 51 Year
  Sex: Female
  Weight: 55 kg

DRUGS (3)
  1. MIRENA [Suspect]
     Active Substance: LEVONORGESTREL
     Indication: Heavy menstrual bleeding
     Dosage: 20?G/DAY
     Route: 015
     Dates: start: 20231211, end: 20231221
  2. ESTRADIOL [Concomitant]
     Active Substance: ESTRADIOL
     Indication: Menopause
     Dates: start: 20230301
  3. UTROGESTAN [Concomitant]
     Active Substance: PROGESTERONE
     Indication: Menopause
     Dates: start: 20220601

REACTIONS (3)
  - Psychotic disorder [Recovered/Resolved with Sequelae]
  - Panic disorder [Recovered/Resolved with Sequelae]
  - Psychophysiologic insomnia [Recovered/Resolved with Sequelae]

NARRATIVE: CASE EVENT DATE: 20231213
